FAERS Safety Report 15956403 (Version 5)
Quarter: 2019Q4

REPORT INFORMATION
  Report Type: Spontaneous
  Country: US (occurrence: US)
  Receive Date: 20190213
  Receipt Date: 20191023
  Transmission Date: 20200122
  Serious: Yes (Congenital Anomaly, Other)
  Sender: FDA-Public Use
  Company Number: PHEH2019US006594

PATIENT
  Sex: Male

DRUGS (2)
  1. ZOFRAN ODT [Suspect]
     Active Substance: ONDANSETRON HYDROCHLORIDE
     Indication: FOETAL EXPOSURE DURING PREGNANCY
     Route: 064
  2. ZOFRAN [Suspect]
     Active Substance: ONDANSETRON HYDROCHLORIDE
     Indication: FOETAL EXPOSURE DURING PREGNANCY
     Route: 064

REACTIONS (29)
  - Injury [Unknown]
  - Contusion [Unknown]
  - Skin papilloma [Unknown]
  - Viral infection [Unknown]
  - Dyspnoea [Unknown]
  - Ventricular septal defect [Unknown]
  - Pulmonary artery dilatation [Unknown]
  - Ear infection [Unknown]
  - Right ventricular hypertrophy [Unknown]
  - Attention deficit/hyperactivity disorder [Unknown]
  - Bradycardia [Unknown]
  - Peripheral arterial occlusive disease [Unknown]
  - Wheezing [Unknown]
  - Right aortic arch [Unknown]
  - Pollakiuria [Unknown]
  - Dehydration [Unknown]
  - Tricuspid valve incompetence [Unknown]
  - Foetal exposure during pregnancy [Unknown]
  - Palpitations [Unknown]
  - Chest pain [Unknown]
  - Dizziness [Unknown]
  - Otitis media chronic [Unknown]
  - Scoliosis [Unknown]
  - Cardiac murmur [Unknown]
  - Atrial septal defect [Unknown]
  - Pulmonary valve stenosis [Unknown]
  - Mitral valve incompetence [Unknown]
  - Pulmonary valve incompetence [Unknown]
  - Bronchitis [Unknown]
